FAERS Safety Report 8358076-5 (Version None)
Quarter: 2012Q2

REPORT INFORMATION
  Report Type: 
  Country: None (occurrence: None)
  Receive Date: 20120514
  Receipt Date: 20120501
  Transmission Date: 20120825
  Serious: Yes (Congenital Anomaly)
  Sender: FDA-Public Use
  Company Number: DE-MYLANLABS-2012S1009384

PATIENT
  Sex: Female

DRUGS (4)
  1. TACROLIMUS [Concomitant]
     Route: 064
  2. MYCOPHENOLATE MOFETIL [Suspect]
     Indication: RENAL TRANSPLANT
     Dosage: 0.5 G/DAY
     Route: 064
  3. PREDNISONE [Concomitant]
     Route: 064
  4. ACEBUTOLOL [Concomitant]
     Route: 064

REACTIONS (5)
  - MATERNAL EXPOSURE DURING PREGNANCY [None]
  - CONGENITAL CYST [None]
  - EXTERNAL AUDITORY CANAL ATRESIA [None]
  - MICROTIA [None]
  - RENAL CYST [None]
